FAERS Safety Report 9322015 (Version 1)
Quarter: 2013Q2

REPORT INFORMATION
  Report Type: Spontaneous
  Country: US (occurrence: US)
  Receive Date: 20130531
  Receipt Date: 20130531
  Transmission Date: 20140414
  Serious: Yes (Other)
  Sender: FDA-Public Use
  Company Number: US-PFIZER INC-2013112384

PATIENT
  Age: 81 Year
  Sex: Female
  Weight: 79.37 kg

DRUGS (11)
  1. ROBITUSSIN PEAK COLD COUGH PLUS CHEST CONGESTION DM [Suspect]
     Indication: THROAT IRRITATION
     Dosage: UNK
     Route: 048
     Dates: start: 20130405, end: 20130408
  2. ROBITUSSIN PEAK COLD COUGH PLUS CHEST CONGESTION DM [Suspect]
     Indication: COUGH
  3. ROBITUSSIN PEAK COLD COUGH PLUS CHEST CONGESTION DM [Suspect]
     Indication: RESPIRATORY TRACT CONGESTION
  4. ROBITUSSIN PEAK COLD COUGH PLUS CHEST CONGESTION DM [Suspect]
     Indication: BRONCHIAL IRRITATION
  5. HYDROCHLOROTHIAZIDE, LISINOPRIL [Concomitant]
     Indication: HYPERTENSION
     Dosage: 10/12.5 MG, UNK
  6. NORVASC [Concomitant]
     Indication: HYPERTENSION
     Dosage: 5 MG, ONCE A DAY
  7. XANAX [Concomitant]
     Dosage: 0.25 MG, UNK
  8. PREDNISOLONE [Concomitant]
     Indication: TEMPORAL ARTERITIS
     Dosage: 1 MG, ONCE A DAY
  9. WARFARIN [Concomitant]
     Indication: CEREBROVASCULAR ACCIDENT
     Dosage: 5 MG, ONCE A DAY
  10. SOTALOL [Concomitant]
     Indication: ATRIAL FIBRILLATION
     Dosage: 120 MG, TWICE A DAY
  11. SIMVASTATIN [Concomitant]
     Dosage: 40 MG, ONCE A DAY

REACTIONS (3)
  - Bronchitis [Unknown]
  - Hypertension [Unknown]
  - Insomnia [Unknown]
